FAERS Safety Report 5721724-X (Version None)
Quarter: 2008Q2

REPORT INFORMATION
  Report Type: 
  Country: None (occurrence: None)
  Receive Date: 20080429
  Receipt Date: 20070404
  Transmission Date: 20081010
  Serious: No
  Sender: FDA-Public Use
  Company Number: US-ASTRAZENECA-2007UW06718

PATIENT
  Age: 80 Year
  Sex: Female
  Weight: 71.7 kg

DRUGS (3)
  1. NEXIUM [Suspect]
     Indication: OESOPHAGEAL STENOSIS
     Route: 048
     Dates: start: 20060101
  2. NEXIUM [Suspect]
     Indication: HIATUS HERNIA
     Route: 048
     Dates: start: 20060101
  3. FORTEO INJECTIONS [Concomitant]
     Route: 058
     Dates: start: 20060101

REACTIONS (2)
  - PARAESTHESIA [None]
  - SKIN DISCOLOURATION [None]
